FAERS Safety Report 12524164 (Version 1)
Quarter: 2016Q3

REPORT INFORMATION
  Report Type: Spontaneous
  Country: US (occurrence: US)
  Receive Date: 20160704
  Receipt Date: 20160704
  Transmission Date: 20161109
  Serious: No
  Sender: FDA-Public Use
  Company Number: US-BIOGEN-2016BI00259276

PATIENT
  Sex: Female

DRUGS (1)
  1. AVONEX [Suspect]
     Active Substance: INTERFERON BETA-1A
     Indication: MULTIPLE SCLEROSIS
     Route: 065
     Dates: start: 19991212, end: 20160502

REACTIONS (3)
  - Multiple sclerosis relapse [Recovered/Resolved]
  - Arthritis [Not Recovered/Not Resolved]
  - Scoliosis [Not Recovered/Not Resolved]
